FAERS Safety Report 6336302-1 (Version None)
Quarter: 2009Q3

REPORT INFORMATION
  Report Type: 
  Country: None (occurrence: None)
  Receive Date: 20090901
  Receipt Date: 20090825
  Transmission Date: 20100115
  Serious: Yes (Death)
  Sender: FDA-Public Use
  Company Number: US-CELGENEUS-163-20785-09041971

PATIENT
  Sex: Female

DRUGS (3)
  1. THALOMID [Suspect]
     Indication: MULTIPLE MYELOMA
     Route: 048
     Dates: start: 20051201, end: 20090401
  2. THALOMID [Suspect]
     Dosage: 200MG-100MG
     Route: 048
     Dates: start: 20050501, end: 20051201
  3. REVLIMID [Suspect]
     Indication: MULTIPLE MYELOMA
     Route: 048
     Dates: start: 20090420, end: 20090501

REACTIONS (2)
  - DISEASE PROGRESSION [None]
  - NECROTISING FASCIITIS [None]
